FAERS Safety Report 8994606 (Version 1)
Quarter: 2013Q1

REPORT INFORMATION
  Report Type: Spontaneous
  Country: US (occurrence: US)
  Receive Date: 20130102
  Receipt Date: 20130102
  Transmission Date: 20140127
  Serious: No
  Sender: FDA-Public Use
  Company Number: US-AMGEN-USASP2012079343

PATIENT
  Sex: Female

DRUGS (2)
  1. ENBREL [Suspect]
     Indication: RHEUMATOID ARTHRITIS
     Dosage: 50 MG, QWK
     Dates: start: 20090625
  2. METHOTREXATE [Concomitant]
     Dosage: 6 MG, QWK
     Route: 030
     Dates: start: 20090625

REACTIONS (2)
  - Nausea [Recovered/Resolved]
  - Sinusitis [Recovered/Resolved]
